FAERS Safety Report 4510931-X (Version None)
Quarter: 2004Q4

REPORT INFORMATION
  Report Type: 
  Country: None (occurrence: None)
  Receive Date: 20041025
  Receipt Date: 20031124
  Transmission Date: 20050328
  Serious: Yes (Hospitalization, Other)
  Sender: FDA-Public Use
  Company Number: NSADSS2002043637

PATIENT
  Age: 50 Year
  Weight: 86.1834 kg

DRUGS (8)
  1. REMICADE [Suspect]
     Dosage: 480 MG, 1 IN 1 AS NECESSARY, INTRAVENOUS DRIP; SEE IMAGE
     Route: 041
     Dates: start: 20020501, end: 20020501
  2. REMICADE [Suspect]
     Dosage: 480 MG, 1 IN 1 AS NECESSARY, INTRAVENOUS DRIP; SEE IMAGE
     Route: 041
     Dates: start: 20021005, end: 20021005
  3. REMICADE [Suspect]
     Dosage: 480 MG, 1 IN 1 AS NECESSARY, INTRAVENOUS DRIP; SEE IMAGE
     Route: 041
     Dates: start: 20021019, end: 20021019
  4. REMICADE [Suspect]
     Dosage: 480 MG, 1 IN 1 AS NECESSARY, INTRAVENOUS DRIP; SEE IMAGE
     Route: 041
     Dates: start: 20021110, end: 20021110
  5. LEVAQUIN [Concomitant]
  6. FLAGYL [Concomitant]
  7. TETOSTERONE (TESTOSTERONE) [Concomitant]
  8. PENTASA [Concomitant]

REACTIONS (3)
  - ABSCESS [None]
  - CROHN'S DISEASE [None]
  - MYOCARDIAL INFARCTION [None]
